FAERS Safety Report 9281675 (Version 5)
Quarter: 2013Q3

REPORT INFORMATION
  Report Type: Report from Study
  Country: JP (occurrence: JP)
  Receive Date: 20130509
  Receipt Date: 20130709
  Transmission Date: 20140515
  Serious: Yes (Death, Other)
  Sender: FDA-Public Use
  Company Number: JP-OTSUKA-JP-2013-11272

PATIENT
  Age: 44 Year
  Sex: Male
  Weight: 110.5 kg

DRUGS (15)
  1. SAMSCA [Suspect]
     Indication: FLUID RETENTION
     Dosage: 15 MG MILLIGRAM(S), QAM
     Route: 048
     Dates: start: 20120919, end: 20120920
  2. SAMSCA [Suspect]
     Dosage: 7.5 MG MILLIGRAM(S), QAM
     Route: 048
     Dates: start: 20120921, end: 20121008
  3. LASIX [Concomitant]
     Indication: CARDIAC FAILURE
     Dosage: 20 MG MILLIGRAM(S), DAILY DOSE
     Route: 042
     Dates: start: 20120918, end: 20120919
  4. PANSPORIN [Concomitant]
     Dosage: 2 G GRAM(S), DAILY DOSE
     Route: 042
     Dates: start: 20120918, end: 20120919
  5. HANP [Concomitant]
     Indication: CARDIAC FAILURE
     Dosage: 2000 MCG, DAILY DOSE
     Route: 042
     Dates: start: 20120918, end: 20120920
  6. LASIX [Concomitant]
     Indication: CARDIAC FAILURE
     Dosage: 40 MG MILLIGRAM(S), DAILY DOSE
     Route: 048
     Dates: start: 20120919, end: 20120927
  7. ARTIST [Concomitant]
     Indication: CARDIAC FAILURE
     Dosage: 1.25 MG MILLIGRAM(S), DAILY DOSE
     Route: 048
     Dates: start: 20120919, end: 20120927
  8. ARTIST [Concomitant]
     Dosage: 2.5 MG MILLIGRAM(S), DAILY DOSE
     Route: 048
     Dates: start: 20120928, end: 20121002
  9. ARTIST [Concomitant]
     Dosage: 3.75 MG MILLIGRAM(S), DAILY DOSE
     Route: 048
     Dates: start: 20121003, end: 20121008
  10. DIGOXIN [Concomitant]
     Indication: CARDIAC FAILURE
     Dosage: 0.125 MG MILLIGRAM(S), DAILY DOSE
     Route: 048
     Dates: start: 20120919, end: 20121008
  11. CATABON [Concomitant]
     Indication: CARDIAC FAILURE
     Dosage: 600 MG MILLIGRAM(S), DAILY DOSE
     Route: 042
     Dates: start: 20120920, end: 20120923
  12. DOBUPUM [Concomitant]
     Indication: CARDIAC FAILURE
     Dosage: 300 MG MILLIGRAM(S), DAILY DOSE
     Route: 042
     Dates: start: 20120920, end: 20120926
  13. DOBUPUM [Concomitant]
     Dosage: 150 MG MILLIGRAM(S), DAILY DOSE
     Route: 042
     Dates: start: 20120927, end: 20121008
  14. ALDACTONE A [Concomitant]
     Indication: CARDIAC FAILURE
     Dosage: 50 MG MILLIGRAM(S), DAILY DOSE
     Route: 048
     Dates: start: 20120927, end: 20121008
  15. MICARDIS [Concomitant]
     Indication: CARDIAC FAILURE
     Dosage: 40 MG MILLIGRAM(S), DAILY DOSE
     Route: 048
     Dates: start: 20121005, end: 20121008

REACTIONS (2)
  - Blood urea increased [Unknown]
  - Pneumonia [Fatal]
